FAERS Safety Report 5357379-6 (Version None)
Quarter: 2007Q2

REPORT INFORMATION
  Report Type: 
  Country: None (occurrence: None)
  Receive Date: 20070614
  Receipt Date: 20070608
  Transmission Date: 20071010
  Serious: Yes (Other)
  Sender: FDA-Public Use
  Company Number: B0474634A

PATIENT
  Age: 71 Year
  Sex: Female

DRUGS (4)
  1. ARIXTRA [Suspect]
     Route: 058
  2. ROCEPHIN [Concomitant]
     Route: 042
  3. RITALIN [Concomitant]
  4. CHEMOTHERAPY [Concomitant]
     Indication: LUNG NEOPLASM

REACTIONS (3)
  - HAEMATURIA [None]
  - THROMBOCYTOPENIA [None]
  - VENOUS THROMBOSIS [None]
